FAERS Safety Report 22311464 (Version 1)
Quarter: 2023Q2

REPORT INFORMATION
  Report Type: Spontaneous
  Country: US (occurrence: US)
  Receive Date: 20230511
  Receipt Date: 20230511
  Transmission Date: 20230721
  Serious: Yes (Death)
  Sender: FDA-Public Use
  Company Number: US-MALLINCKRODT-MNK202301507

PATIENT
  Sex: Female

DRUGS (3)
  1. CORTICOTROPIN [Suspect]
     Active Substance: CORTICOTROPIN
     Indication: Pulmonary fibrosis
     Dosage: 40 UNITS, TWICE A WEEK
     Route: 058
     Dates: start: 202202
  2. CORTICOTROPIN [Suspect]
     Active Substance: CORTICOTROPIN
     Indication: Pulmonary sarcoidosis
  3. TYVASO [Concomitant]
     Active Substance: TREPROSTINIL
     Indication: Product used for unknown indication
     Dosage: DPI
     Route: 055

REACTIONS (1)
  - Death [Fatal]
